FAERS Safety Report 9041863 (Version 1)
Quarter: 2013Q1

REPORT INFORMATION
  Report Type: Report from Study
  Country: US (occurrence: US)
  Receive Date: 20130129
  Receipt Date: 20130129
  Transmission Date: 20140127
  Serious: No
  Sender: FDA-Public Use
  Company Number: US-ABBOTT-12P-163-0893986-00

PATIENT
  Age: 52 None
  Sex: Male
  Weight: 79.45 kg

DRUGS (6)
  1. HUMIRA 40 MG/0.8 ML PEN [Suspect]
     Indication: PSORIASIS
     Dosage: 80 MG ONCE
     Dates: start: 20110915, end: 20110915
  2. HUMIRA 40 MG/0.8 ML PEN [Suspect]
     Dates: start: 20110929, end: 20110929
  3. HUMIRA 40 MG/0.8 ML PEN [Suspect]
     Dates: start: 20120126
  4. LEXAPRO [Suspect]
     Indication: DEPRESSION
     Dates: start: 20120102, end: 20120113
  5. XANAX [Concomitant]
     Indication: ANXIETY
  6. ASPIRIN [Concomitant]
     Indication: PRODUCT USED FOR UNKNOWN INDICATION

REACTIONS (5)
  - Skin irritation [Not Recovered/Not Resolved]
  - Rash [Not Recovered/Not Resolved]
  - Rash [Not Recovered/Not Resolved]
  - Nasopharyngitis [Recovered/Resolved]
  - Skin irritation [Not Recovered/Not Resolved]
